FAERS Safety Report 8986211 (Version 1)
Quarter: 2012Q4

REPORT INFORMATION
  Report Type: 
  Country: FR (occurrence: FR)
  Receive Date: 20121227
  Receipt Date: 20121227
  Transmission Date: 20130627
  Serious: Yes (Disabling)
  Sender: FDA-Public Use
  Company Number: FR-BAYER-2012-133792

PATIENT
  Age: 51 Year
  Sex: Male

DRUGS (7)
  1. IZILOX [Suspect]
     Indication: TENOSYNOVITIS
     Dosage: 400 mg, QD
     Route: 048
     Dates: start: 20120101, end: 20120630
  2. IZILOX [Suspect]
     Indication: MYCOBACTERIAL INFECTION
  3. MYAMBUTOL [Suspect]
     Indication: TENOSYNOVITIS
     Dosage: 2 g, QD
     Route: 048
     Dates: start: 20111215, end: 201205
  4. MYAMBUTOL [Suspect]
     Indication: MYCOBACTERIAL INFECTION
  5. ZECLAR [Suspect]
     Indication: TENOSYNOVITIS
     Dosage: 500 mg, BID
     Route: 048
     Dates: start: 20111215, end: 20120630
  6. ZECLAR [Suspect]
     Indication: MYCOBACTERIAL INFECTION
  7. PREVISCAN [Suspect]
     Indication: THROMBOPHLEBITIS CEREBRAL VEIN
     Dosage: 20 mg, QD
     Route: 048
     Dates: start: 20120101

REACTIONS (2)
  - Dysaesthesia [Not Recovered/Not Resolved]
  - Optic neuritis [Not Recovered/Not Resolved]
